FAERS Safety Report 5061683-9 (Version None)
Quarter: 2006Q3

REPORT INFORMATION
  Report Type: 
  Country: None (occurrence: None)
  Receive Date: 20060726
  Receipt Date: 20060711
  Transmission Date: 20061208
  Serious: Yes (Life-Threatening, Hospitalization, Disabling, Other)
  Sender: FDA-Public Use
  Company Number: PHEH2006US08965

PATIENT
  Age: 41 Year
  Sex: Female
  Weight: 66.666 kg

DRUGS (1)
  1. LAMISIL [Suspect]
     Indication: NAIL TINEA
     Dosage: 250 MG, QD
     Route: 048
     Dates: start: 20060301, end: 20060626

REACTIONS (7)
  - ANXIETY [None]
  - ASPARTATE AMINOTRANSFERASE DECREASED [None]
  - DEPRESSION [None]
  - DISTURBANCE IN ATTENTION [None]
  - HAEMOTHORAX [None]
  - SUICIDE ATTEMPT [None]
  - THROMBOEMBOLECTOMY [None]
